FAERS Safety Report 4687057-8 (Version None)
Quarter: 2005Q2

REPORT INFORMATION
  Report Type: 
  Country: None (occurrence: None)
  Receive Date: 20050608
  Receipt Date: 20050602
  Transmission Date: 20051028
  Serious: Yes (Other)
  Sender: FDA-Public Use
  Company Number: 2005BH000055

PATIENT
  Age: 23 Year
  Sex: Female

DRUGS (1)
  1. ATIVAN [Suspect]
     Dosage: 10 MG; ONCE; PO
     Route: 048
     Dates: start: 20050520, end: 20050520

REACTIONS (3)
  - DISORIENTATION [None]
  - DYSLALIA [None]
  - INTENTIONAL MISUSE [None]
